FAERS Safety Report 19252715 (Version 3)
Quarter: 2021Q2

REPORT INFORMATION
  Report Type: Report from Study
  Country: PL (occurrence: PL)
  Receive Date: 20210513
  Receipt Date: 20210520
  Transmission Date: 20210717
  Serious: Yes (Death, Hospitalization)
  Sender: FDA-Public Use
  Company Number: PL-EISAI MEDICAL RESEARCH-EC-2021-092546

PATIENT
  Age: 69 Year
  Sex: Male

DRUGS (8)
  1. TERTENSIF SR [Concomitant]
     Active Substance: INDAPAMIDE
     Dates: start: 200607
  2. BETALOC ZOK [Concomitant]
     Active Substance: METOPROLOL SUCCINATE
     Dates: start: 200607
  3. TELDIPIN [Concomitant]
     Dates: start: 200607
  4. CARDURA XL [Concomitant]
     Active Substance: DOXAZOSIN MESYLATE
     Dates: start: 200607
  5. LENVATINIB [Suspect]
     Active Substance: LENVATINIB
     Indication: RENAL CELL CARCINOMA
     Route: 048
     Dates: start: 20210416, end: 2021
  6. PEMBROLIZUMAB. [Suspect]
     Active Substance: PEMBROLIZUMAB
     Indication: RENAL CELL CARCINOMA
     Route: 042
     Dates: start: 20210416, end: 20210416
  7. SIMCOVAS [Concomitant]
     Dates: start: 201607
  8. GLUCOPHAGE [Concomitant]
     Active Substance: METFORMIN HYDROCHLORIDE
     Dates: start: 202103

REACTIONS (1)
  - Pulmonary embolism [Fatal]

NARRATIVE: CASE EVENT DATE: 20210505
